FAERS Safety Report 9296426 (Version 2)
Quarter: 2013Q2

REPORT INFORMATION
  Report Type: Spontaneous
  Country: BR (occurrence: BR)
  Receive Date: 20130517
  Receipt Date: 20130521
  Transmission Date: 20140414
  Serious: Yes (Death)
  Sender: FDA-Public Use
  Company Number: BR-009507513-1305BRA010098

PATIENT
  Sex: Female

DRUGS (1)
  1. ZENHALE [Suspect]
     Route: 048

REACTIONS (2)
  - Death [Fatal]
  - Product quality issue [Unknown]
